FAERS Safety Report 4536666-5 (Version None)
Quarter: 2004Q4

REPORT INFORMATION
  Report Type: 
  Country: None (occurrence: None)
  Receive Date: 20041222
  Receipt Date: 20041222
  Transmission Date: 20050328
  Serious: Yes (Disabling, Other)
  Sender: FDA-Public Use
  Company Number: None

PATIENT
  Age: 55 Year
  Sex: Male
  Weight: 74.8435 kg

DRUGS (6)
  1. CORICIDIN D SRT [Suspect]
     Indication: INFLUENZA
     Dosage: 2 TABLETS QD ORAL
     Route: 048
     Dates: start: 19901015, end: 19901024
  2. CORICIDIN D SRT [Suspect]
     Indication: SINUS DISORDER
     Dosage: 2 TABLETS QD ORAL
     Route: 048
     Dates: start: 19901015, end: 19901024
  3. ATENOLOL [Concomitant]
  4. ANTIANXIETY AGENT/TRANQUILIZER [Concomitant]
  5. LIPITOR [Concomitant]
  6. ASPIRIN [Concomitant]

REACTIONS (4)
  - BLADDER DISORDER [None]
  - CEREBROVASCULAR ACCIDENT [None]
  - EYE DISORDER [None]
  - HEADACHE [None]
